FAERS Safety Report 13782361 (Version 1)
Quarter: 2017Q3

REPORT INFORMATION
  Report Type: Spontaneous
  Country: GB (occurrence: GB)
  Receive Date: 20170724
  Receipt Date: 20170724
  Transmission Date: 20171127
  Serious: Yes (Life-Threatening, Hospitalization)
  Sender: FDA-Public Use
  Company Number: GB-PFIZER INC-147834

PATIENT
  Age: 68 Year
  Sex: Female
  Weight: 80 kg

DRUGS (5)
  1. NAPROXEN. [Concomitant]
     Active Substance: NAPROXEN
     Indication: ARTHRALGIA
     Route: 048
  2. BUMETANIDE. [Concomitant]
     Active Substance: BUMETANIDE
     Indication: DYSPNOEA
     Dosage: 1 MG, UNK
     Route: 048
  3. NEBIVOLOL. [Concomitant]
     Active Substance: NEBIVOLOL
     Route: 048
  4. METHOTREXATE SODIUM. [Suspect]
     Active Substance: METHOTREXATE SODIUM
     Indication: RHEUMATOID ARTHRITIS
     Dosage: 20 MG, UNK
     Route: 048
     Dates: start: 20080101, end: 20080101
  5. LANSOPRAZOLE. [Concomitant]
     Active Substance: LANSOPRAZOLE
     Indication: GASTRIC ULCER
     Dosage: 30 MG, UNK
     Route: 048

REACTIONS (1)
  - Cardiac tamponade [Not Recovered/Not Resolved]

NARRATIVE: CASE EVENT DATE: 20080901
